FAERS Safety Report 12561268 (Version 1)
Quarter: 2016Q3

REPORT INFORMATION
  Report Type: Spontaneous
  Country: CN (occurrence: CN)
  Receive Date: 20160715
  Receipt Date: 20160715
  Transmission Date: 20161109
  Serious: Yes (Other)
  Sender: FDA-Public Use
  Company Number: CN-PFIZER INC-2016336156

PATIENT
  Age: 65 Year
  Sex: Male
  Weight: 57 kg

DRUGS (5)
  1. NORVASC [Suspect]
     Active Substance: AMLODIPINE BESYLATE
     Indication: CEREBRAL INFARCTION
     Dosage: 5 MG, 1X/DAY
     Route: 048
     Dates: start: 20151226, end: 20160201
  2. IRBESARTAN. [Concomitant]
     Active Substance: IRBESARTAN
     Indication: CEREBRAL INFARCTION
     Dosage: 2 DF, 1X/DAY
     Route: 048
     Dates: start: 20151226, end: 20160205
  3. RESERPINE COMPOUND /00005801/ [Concomitant]
     Indication: CEREBRAL INFARCTION
     Dosage: 1 DF, 1X/DAY
     Route: 048
     Dates: start: 20151226, end: 20160205
  4. BISOPROLOL FUMARATE. [Concomitant]
     Active Substance: BISOPROLOL FUMARATE
     Indication: CEREBRAL INFARCTION
     Dosage: 1 DF, 1X/DAY
     Route: 048
     Dates: start: 20151226, end: 20160205
  5. NORVASC [Suspect]
     Active Substance: AMLODIPINE BESYLATE
     Indication: HYPERTENSION

REACTIONS (1)
  - Pollakiuria [Not Recovered/Not Resolved]

NARRATIVE: CASE EVENT DATE: 20160201
